FAERS Safety Report 7508014-X (Version None)
Quarter: 2011Q2

REPORT INFORMATION
  Report Type: 
  Country: None (occurrence: None)
  Receive Date: 20110527
  Receipt Date: 20110519
  Transmission Date: 20111010
  Serious: Yes (Hospitalization)
  Sender: FDA-Public Use
  Company Number: US-US-EMD SERONO, INC.-7056290

PATIENT
  Sex: Female

DRUGS (6)
  1. REBIF [Suspect]
     Route: 058
     Dates: start: 20110301
  2. CELEXA [Concomitant]
     Indication: DEPRESSION
  3. REBIF [Suspect]
     Route: 058
     Dates: end: 20110501
  4. NORVASC [Concomitant]
     Indication: HYPERTENSION
  5. REBIF [Suspect]
     Indication: MULTIPLE SCLEROSIS
     Route: 058
     Dates: start: 20091019, end: 20110101
  6. WELLBUTRIN [Concomitant]
     Indication: DEPRESSION

REACTIONS (1)
  - NEPHROLITHIASIS [None]
